FAERS Safety Report 7754348-3 (Version None)
Quarter: 2011Q3

REPORT INFORMATION
  Report Type: 
  Country: None (occurrence: None)
  Receive Date: 20110915
  Receipt Date: 20110908
  Transmission Date: 20111222
  Serious: Yes (Other)
  Sender: FDA-Public Use
  Company Number: PHHY2011GB79932

PATIENT
  Age: 79 Year
  Sex: Female

DRUGS (4)
  1. FUROSEMIDE [Concomitant]
     Dosage: 40 MG, UNK
  2. CANDESARTAN CILEXETIL [Concomitant]
     Dosage: 8 MG, BID
  3. MIRTAZAPINE [Suspect]
  4. SIMVASTATIN [Concomitant]
     Dosage: 20 MG, UNK

REACTIONS (2)
  - DRUG INTOLERANCE [None]
  - ABNORMAL DREAMS [None]
